FAERS Safety Report 5647543-0 (Version None)
Quarter: 2008Q1

REPORT INFORMATION
  Report Type: 
  Country: None (occurrence: None)
  Receive Date: 20080131
  Receipt Date: 20071224
  Transmission Date: 20080703
  Serious: No
  Sender: FDA-Public Use
  Company Number: 163-21880-07121356

PATIENT
  Age: 78 Year
  Sex: Male

DRUGS (2)
  1. REVLIMID [Suspect]
     Indication: MULTIPLE MYELOMA
     Dosage: 25 MG, 1 IN 1 D, ORAL; 15 MG, DAILY 21/28, ORAL
     Route: 048
     Dates: start: 20071206, end: 20071219
  2. REVLIMID [Suspect]
     Indication: MULTIPLE MYELOMA
     Dosage: 25 MG, 1 IN 1 D, ORAL; 15 MG, DAILY 21/28, ORAL
     Route: 048
     Dates: start: 20071201

REACTIONS (6)
  - CONFUSIONAL STATE [None]
  - HYPERSOMNIA [None]
  - MULTIPLE MYELOMA [None]
  - PAIN [None]
  - PLATELET COUNT DECREASED [None]
  - WEIGHT DECREASED [None]
